FAERS Safety Report 18841793 (Version 1)
Quarter: 2021Q1

REPORT INFORMATION
  Report Type: Spontaneous
  Country: JP (occurrence: JP)
  Receive Date: 20210204
  Receipt Date: 20210204
  Transmission Date: 20210419
  Serious: Yes (Hospitalization, Other)
  Sender: FDA-Public Use
  Company Number: JP-ACCORD-212825

PATIENT
  Age: 11 Year
  Sex: Male

DRUGS (4)
  1. CEFMETAZOLE [Concomitant]
     Active Substance: CEFMETAZOLE
     Indication: ANAESTHESIA
     Dosage: STRENGTH 1 G
  2. PROPOFOL. [Concomitant]
     Active Substance: PROPOFOL
     Indication: ANAESTHESIA
     Dosage: STRENGTH 50 MG
  3. ROCURONIUM/ROCURONIUM BROMIDE [Suspect]
     Active Substance: ROCURONIUM BROMIDE
     Indication: INDUCTION OF ANAESTHESIA
     Dosage: STRENGTH 30 MG
  4. ATROPINE. [Suspect]
     Active Substance: ATROPINE
     Indication: INDUCTION OF ANAESTHESIA
     Dosage: STRENGTH 0.25 MG

REACTIONS (1)
  - Urticaria [Recovered/Resolved]
